FAERS Safety Report 9656793 (Version 1)
Quarter: 2013Q4

REPORT INFORMATION
  Report Type: Spontaneous
  Country: JP (occurrence: JP)
  Receive Date: 20131030
  Receipt Date: 20131030
  Transmission Date: 20140711
  Serious: Yes (Hospitalization)
  Sender: FDA-Public Use
  Company Number: JP-B.I. PHARMACEUTICALS,INC./RIDGEFIELD-2013-BI-34252NB

PATIENT
  Age: 8 Decade
  Sex: Male

DRUGS (1)
  1. PRAZAXA [Suspect]
     Route: 065

REACTIONS (2)
  - Loss of consciousness [Unknown]
  - Convulsion [Unknown]
